FAERS Safety Report 4449080-8 (Version None)
Quarter: 2004Q3

REPORT INFORMATION
  Report Type: 
  Country: None (occurrence: None)
  Receive Date: 20040909
  Receipt Date: 20040824
  Transmission Date: 20050211
  Serious: Yes (Hospitalization)
  Sender: FDA-Public Use
  Company Number: US_0406103581

PATIENT
  Age: 55 Year
  Sex: Female
  Weight: 113 kg

DRUGS (8)
  1. DULOXETINE HYDROCHLORIDE [Suspect]
     Indication: DIABETIC NEUROPATHY
     Dosage: 30 MG/2 DAY
     Dates: start: 20030512, end: 20040511
  2. ACTOS [Concomitant]
  3. GLUCPHAGE XR (METFORMIN HYDROCHLORIDE) [Concomitant]
  4. ASPIRIN [Concomitant]
  5. CENTRUM [Concomitant]
  6. MAGNESIUM [Concomitant]
  7. NAPROSYN [Concomitant]
  8. CALCIUM [Concomitant]

REACTIONS (14)
  - ADRENAL ADENOMA [None]
  - BACTERIA URINE IDENTIFIED [None]
  - BLOOD GLUCOSE INCREASED [None]
  - BLOOD PRESSURE INCREASED [None]
  - HEART RATE INCREASED [None]
  - HEPATIC STEATOSIS [None]
  - HYDRONEPHROSIS [None]
  - KIDNEY ENLARGEMENT [None]
  - NAUSEA [None]
  - NEPHRITIS [None]
  - NEPHROLITHIASIS [None]
  - OVARIAN CYST [None]
  - PYELONEPHRITIS ACUTE [None]
  - URINE KETONE BODY PRESENT [None]
